FAERS Safety Report 4840340-5 (Version None)
Quarter: 2005Q4

REPORT INFORMATION
  Report Type: 
  Country: None (occurrence: None)
  Receive Date: 20051025
  Receipt Date: 20050816
  Transmission Date: 20060501
  Serious: Yes (Other)
  Sender: FDA-Public Use
  Company Number: HQWYE963117AUG05

PATIENT

DRUGS (1)
  1. RAPAMUNE [Suspect]
     Indication: ORGAN TRANSPLANT
     Dosage: ORAL
     Route: 048

REACTIONS (1)
  - CARDIAC FAILURE [None]
